FAERS Safety Report 17209476 (Version 1)
Quarter: 2019Q4

REPORT INFORMATION
  Report Type: Spontaneous
  Country: US (occurrence: US)
  Receive Date: 20191227
  Receipt Date: 20191227
  Transmission Date: 20200122
  Serious: Yes (Hospitalization, Other)
  Sender: FDA-Public Use
  Company Number: US-PFIZER INC-2019557662

PATIENT
  Age: 50 Year
  Sex: Female

DRUGS (1)
  1. IBRANCE [Suspect]
     Active Substance: PALBOCICLIB
     Indication: BREAST CANCER FEMALE
     Dosage: 125 MG, CYCLIC [1 CAPSULE EVERY DAY FOR 21 DAYS, THEN 7 DAYS OFF]
     Route: 048
     Dates: end: 201912

REACTIONS (2)
  - Renal failure [Unknown]
  - Stomatitis [Unknown]
